FAERS Safety Report 13700504 (Version 1)
Quarter: 2017Q2

REPORT INFORMATION
  Report Type: Spontaneous
  Country: FR (occurrence: FR)
  Receive Date: 20170629
  Receipt Date: 20170629
  Transmission Date: 20170830
  Serious: Yes (Hospitalization)
  Sender: FDA-Public Use
  Company Number: FR-ACCORD-053130

PATIENT
  Age: 61 Year
  Sex: Female

DRUGS (8)
  1. FOLINATE DE CALCIUM ZENTIVA [Concomitant]
     Active Substance: LEUCOVORIN CALCIUM
     Indication: PREMEDICATION
     Dosage: DOSE: 575 MG, ONCE IN ONE CYCLE
     Route: 042
     Dates: start: 20170601, end: 20170601
  2. FLUOROURACIL. [Concomitant]
     Active Substance: FLUOROURACIL
     Indication: ADENOCARCINOMA OF COLON
     Dosage: FOLFOX REGIMEN,??SIXTH TREATMENT COURSE OF ADJUVANT CHEMOTHERAPY
     Dates: start: 20170601
  3. CALCIUM GLUCONATE AGUETTANT [Concomitant]
     Active Substance: CALCIUM GLUCONATE
     Indication: PREMEDICATION
     Dosage: DOSE: 1 G ONCE IN ONE CYCLE
     Route: 042
     Dates: start: 20170601, end: 20170601
  4. OXALIPLATIN ACCORD [Suspect]
     Active Substance: OXALIPLATIN
     Indication: ADENOCARCINOMA OF COLON
     Dosage: STRENGTH: 5 MG/ML,??FOLFOX REGIMEN SIXTH TREATMENT COURSE OF ADJUVANT CHEMOTHERAPY
     Route: 042
     Dates: start: 20170601, end: 20170601
  5. ZOPHREN [Concomitant]
     Active Substance: ONDANSETRON
     Indication: VOMITING
     Dosage: STRENGTH: 8 MG/4 ML,??DOSE: ONE DOSAGE FORM ONCE IN ONE CYCLE
     Route: 042
     Dates: start: 20170601, end: 20170601
  6. MAGNESIUM CHLORURE RENAUDIN [Concomitant]
     Indication: PREMEDICATION
     Dosage: STRENGTH: 10 % (0.1 G/ML),??DOSE: 1.5 G ONCE IN ONE CYCLE
     Route: 042
     Dates: start: 20170601, end: 20170601
  7. FOLINIC ACID [Concomitant]
     Active Substance: LEUCOVORIN
     Indication: ADENOCARCINOMA OF COLON
     Dosage: FOLFOX REGIMEN,??SIXTH TREATMENT COURSE OF ADJUVANT CHEMOTHERAPY
     Dates: start: 20170601
  8. METHYLPREDNISOLONE MYLAN [Concomitant]
     Active Substance: METHYLPREDNISOLONE
     Indication: PREMEDICATION
     Dosage: STRENGTH: 120 MG,??DOSE: 80 MG ONCE IN ONE DAY BY CENTRAL INTRACATHETER
     Dates: start: 20170601

REACTIONS (6)
  - Ear swelling [Recovered/Resolved]
  - Pruritus [Recovered/Resolved]
  - Dyspnoea [Recovered/Resolved]
  - Pharyngeal oedema [Recovered/Resolved]
  - Erythema [Recovered/Resolved]
  - Nasal oedema [Recovered/Resolved]

NARRATIVE: CASE EVENT DATE: 20170601
